FAERS Safety Report 7961169-5 (Version None)
Quarter: 2011Q4

REPORT INFORMATION
  Report Type: 
  Country: None (occurrence: None)
  Receive Date: 20111207
  Receipt Date: 20111202
  Transmission Date: 20120403
  Serious: Yes (Other)
  Sender: FDA-Public Use
  Company Number: BR-PFIZER INC-2011295683

PATIENT
  Age: 59 Year
  Sex: Female

DRUGS (4)
  1. VARENICLINE TARTRATE [Suspect]
     Indication: TOBACCO USER
     Dosage: UNK
     Route: 048
     Dates: start: 20111117, end: 20111101
  2. DORFLEX [Concomitant]
     Indication: PAIN
     Dosage: 2 DF, UNK DAILY
  3. SCOPOLAMINE [Concomitant]
     Indication: PAIN
     Dosage: 2 OR 3 TABLETS
  4. VARENICLINE TARTRATE [Suspect]
     Dosage: 1 MG, 2X/DAY
     Route: 048
     Dates: start: 20111101, end: 20111130

REACTIONS (1)
  - GALLBLADDER OPERATION [None]
